FAERS Safety Report 7479926-0 (Version None)
Quarter: 2011Q2

REPORT INFORMATION
  Report Type: 
  Country: None (occurrence: None)
  Receive Date: 20110516
  Receipt Date: 20110510
  Transmission Date: 20111010
  Serious: Yes (Other)
  Sender: FDA-Public Use
  Company Number: DE-BIOGENIDEC-2011BI012526

PATIENT
  Age: 0 Day
  Sex: Female

DRUGS (5)
  1. IMMUNE GLOBULIN INTRAVENOUS (HUMAN) [Concomitant]
     Indication: DRUG EXPOSURE DURING PREGNANCY
     Route: 042
     Dates: start: 20100701, end: 20100701
  2. CORTICOSTEROIDS [Concomitant]
     Indication: DRUG EXPOSURE DURING PREGNANCY
     Route: 064
     Dates: start: 20100701, end: 20100701
  3. TYSABRI [Suspect]
     Indication: DRUG EXPOSURE DURING PREGNANCY
     Route: 064
     Dates: start: 20090401, end: 20100418
  4. CORTICOSTEROIDS [Concomitant]
     Route: 064
     Dates: start: 20100701, end: 20100701
  5. TYSABRI [Suspect]
     Route: 064
     Dates: start: 20100718, end: 20101018

REACTIONS (3)
  - HYPOGLYCAEMIA NEONATAL [None]
  - SMALL FOR DATES BABY [None]
  - CEREBRAL HAEMORRHAGE FOETAL [None]
